FAERS Safety Report 4327869-3 (Version None)
Quarter: 2004Q1

REPORT INFORMATION
  Report Type: 
  Country: None (occurrence: None)
  Receive Date: 20040325
  Receipt Date: 20040309
  Transmission Date: 20041129
  Serious: Yes (Hospitalization)
  Sender: FDA-Public Use
  Company Number: AU-JNJFOC-20040304307

PATIENT
  Age: 52 Year
  Sex: Male

DRUGS (4)
  1. TRAMADOL HCL [Suspect]
     Dosage: 50 MG, 3 IN 1 DAY, ORAL
     Route: 048
     Dates: start: 20030313, end: 20030503
  2. VIOXX [Suspect]
     Dosage: 12.5 MG, 1 IN 1 DAY, ORAL
     Route: 048
     Dates: start: 20030401
  3. LITHIUM CARBONATE [Suspect]
     Dosage: 250 MG, 4 IN 1 DAY, ORAL
     Route: 048
     Dates: start: 20000101, end: 20030429
  4. ZOLOFT [Suspect]
     Dosage: 100 MG, 1 IN 1 DAY, ORAL
     Route: 048
     Dates: start: 20010401, end: 20030429

REACTIONS (8)
  - ANOREXIA [None]
  - CONFUSIONAL STATE [None]
  - DRUG INTERACTION [None]
  - DRUG LEVEL INCREASED [None]
  - DRUG TOXICITY [None]
  - PSYCHOTIC DISORDER [None]
  - RESTLESSNESS [None]
  - SPEECH DISORDER [None]
